FAERS Safety Report 5129724-8 (Version None)
Quarter: 2006Q4

REPORT INFORMATION
  Report Type: 
  Country: None (occurrence: None)
  Receive Date: 20061018
  Receipt Date: 20061006
  Transmission Date: 20070319
  Serious: Yes (Other)
  Sender: FDA-Public Use
  Company Number: JP-ROCHE-466941

PATIENT
  Age: 6 Year
  Sex: Male

DRUGS (1)
  1. TAMIFLU [Suspect]
     Dosage: FORM REPORTED AS ORAL FORMULATION NOT OTHERWISE SPECIFIED
     Route: 048
     Dates: start: 20060109, end: 20060111

REACTIONS (1)
  - DELIRIUM [None]
